FAERS Safety Report 10863302 (Version 2)
Quarter: 2015Q2

REPORT INFORMATION
  Report Type: Spontaneous
  Country: IT (occurrence: IT)
  Receive Date: 20150224
  Receipt Date: 20150618
  Transmission Date: 20150821
  Serious: Yes (Life-Threatening)
  Sender: FDA-Public Use
  Company Number: IT-ABBVIE-15K-083-1350094-00

PATIENT
  Age: 41 Year
  Sex: Female

DRUGS (1)
  1. HUMIRA [Suspect]
     Active Substance: ADALIMUMAB
     Indication: SACROILIITIS
     Dosage: 40 MG, FREQUENCY 1 CYCLICAL
     Route: 058

REACTIONS (4)
  - Coronary artery thrombosis [Recovered/Resolved]
  - Acute myocardial infarction [Recovered/Resolved]
  - Angioplasty [Recovered/Resolved]
  - Vascular procedure complication [Recovered/Resolved]

NARRATIVE: CASE EVENT DATE: 20150216
